FAERS Safety Report 5291862-7 (Version None)
Quarter: 2007Q2

REPORT INFORMATION
  Report Type: 
  Country: None (occurrence: None)
  Receive Date: 20070406
  Receipt Date: 20070406
  Transmission Date: 20071010
  Serious: Yes (Hospitalization)
  Sender: FDA-Public Use
  Company Number: None

PATIENT
  Age: 84 Year

DRUGS (1)
  1. PHENYTOIN [Suspect]
     Dosage: 400MG QHS PO
     Route: 048

REACTIONS (5)
  - ABDOMINAL DISTENSION [None]
  - ANTICONVULSANT DRUG LEVEL ABOVE THERAPEUTIC [None]
  - DIZZINESS [None]
  - FALL [None]
  - NAUSEA [None]
